FAERS Safety Report 8452602-3 (Version None)
Quarter: 2012Q2

REPORT INFORMATION
  Report Type: 
  Country: None (occurrence: None)
  Receive Date: 20120620
  Receipt Date: 20120419
  Transmission Date: 20120825
  Serious: No
  Sender: FDA-Public Use
  Company Number: US-VERTEX PHARMACEUTICALS INC.-AE-2012-005664

PATIENT
  Age: 62 Year
  Sex: Male

DRUGS (3)
  1. INCIVEK [Suspect]
     Indication: HEPATITIS C
     Route: 048
     Dates: start: 20120314
  2. RIBAVIRIN [Concomitant]
     Indication: HEPATITIS C
     Route: 048
     Dates: start: 20120314
  3. PEGASYS [Concomitant]
     Indication: HEPATITIS C
     Dates: start: 20120314

REACTIONS (7)
  - EPISTAXIS [None]
  - INFLUENZA LIKE ILLNESS [None]
  - PLATELET COUNT DECREASED [None]
  - HEADACHE [None]
  - NASAL CONGESTION [None]
  - CHEST DISCOMFORT [None]
  - RASH [None]
